FAERS Safety Report 5167501-2 (Version None)
Quarter: 2006Q4

REPORT INFORMATION
  Report Type: 
  Country: None (occurrence: None)
  Receive Date: 20061130
  Receipt Date: 20061121
  Transmission Date: 20070319
  Serious: Yes (Death, Hospitalization, Other)
  Sender: FDA-Public Use
  Company Number: 2006-05915

PATIENT
  Sex: Female

DRUGS (1)
  1. ATRACURIUM BESYLATE [Suspect]
     Indication: WRONG DRUG ADMINISTERED
     Dosage: 10 MG, SINGLE, INTRAMUSCULAR
     Route: 030
     Dates: start: 20021129

REACTIONS (9)
  - CARDIAC ARREST NEONATAL [None]
  - CYANOSIS NEONATAL [None]
  - INCORRECT ROUTE OF DRUG ADMINISTRATION [None]
  - MULTI-ORGAN FAILURE [None]
  - NEONATAL DISORDER [None]
  - NEONATAL RESPIRATORY FAILURE [None]
  - OVERDOSE [None]
  - PARALYSIS FLACCID [None]
  - WRONG DRUG ADMINISTERED [None]
